FAERS Safety Report 25235359 (Version 2)
Quarter: 2025Q2

REPORT INFORMATION
  Report Type: Spontaneous
  Country: JP (occurrence: JP)
  Receive Date: 20250424
  Receipt Date: 20250618
  Transmission Date: 20250716
  Serious: Yes (Life-Threatening, Hospitalization)
  Sender: ABBVIE
  Company Number: JP-ABBVIE-6248403

PATIENT
  Age: 65 Year
  Sex: Female
  Weight: 34 kg

DRUGS (9)
  1. RINVOQ [Suspect]
     Active Substance: UPADACITINIB
     Indication: Crohn^s disease
     Dosage: FORM STRENGTH 45 MILLIGRAM
     Route: 048
     Dates: start: 20250214, end: 20250421
  2. LANSOPRAZOLE [Concomitant]
     Active Substance: LANSOPRAZOLE
     Indication: Prophylaxis
     Dosage: 15 MILLIGRAM
     Route: 048
     Dates: start: 20240806, end: 20250421
  3. THROMBOMODULIN ALFA [Concomitant]
     Active Substance: THROMBOMODULIN ALFA
     Indication: Septic shock
     Route: 042
     Dates: start: 20250422, end: 20250426
  4. ALENDRONATE SODIUM [Concomitant]
     Active Substance: ALENDRONATE SODIUM
     Indication: Prophylaxis
     Dosage: 35 MILLIGRAM
     Route: 048
     Dates: start: 20241012, end: 20250421
  5. SULFAMETHOXAZOLE AND TRIMETHOPRIM [Concomitant]
     Active Substance: SULFAMETHOXAZOLE\TRIMETHOPRIM
     Indication: Prophylaxis
     Route: 048
     Dates: start: 20241012, end: 20250421
  6. MIROGABALIN BESYLATE [Concomitant]
     Active Substance: MIROGABALIN BESYLATE
     Indication: Post herpetic neuralgia
     Dosage: 20 MILLIGRAM
     Route: 048
     Dates: start: 20241225, end: 20250421
  7. MESALAMINE [Concomitant]
     Active Substance: MESALAMINE
     Indication: Crohn^s disease
     Route: 048
     Dates: start: 20240725, end: 20250421
  8. PREDNISOLONE [Concomitant]
     Active Substance: PREDNISOLONE
     Indication: Crohn^s disease
     Route: 048
     Dates: start: 20241012, end: 20250421
  9. PREDNISOLONE [Concomitant]
     Active Substance: PREDNISOLONE
     Indication: Crohn^s disease
     Dates: start: 20250502

REACTIONS (9)
  - Septic shock [Recovering/Resolving]
  - Ileus [Recovering/Resolving]
  - Escherichia test positive [Unknown]
  - Crohn^s disease [Unknown]
  - Enterococcus test positive [Unknown]
  - Malaise [Unknown]
  - Haematochezia [Unknown]
  - Abdominal distension [Recovered/Resolved]
  - Chills [Unknown]

NARRATIVE: CASE EVENT DATE: 20250101
